FAERS Safety Report 16288160 (Version 1)
Quarter: 2019Q2

REPORT INFORMATION
  Report Type: Report from Study
  Country: US (occurrence: US)
  Receive Date: 20190508
  Receipt Date: 20190508
  Transmission Date: 20190711
  Serious: Yes (Other)
  Sender: FDA-Public Use
  Company Number: US-GILEAD-2019-0404012

PATIENT
  Age: 74 Year
  Sex: Female

DRUGS (2)
  1. RANOLAZINE. [Suspect]
     Active Substance: RANOLAZINE
     Dosage: UNK
     Route: 048
     Dates: start: 2017
  2. RANOLAZINE. [Suspect]
     Active Substance: RANOLAZINE
     Indication: ANGINA PECTORIS
     Dosage: 500 MG, BID
     Route: 048
     Dates: start: 20190322

REACTIONS (6)
  - Stent placement [Unknown]
  - Abdominal pain upper [Unknown]
  - Catheter placement [Unknown]
  - Product use issue [Unknown]
  - Amnesia [Unknown]
  - Nausea [Unknown]

NARRATIVE: CASE EVENT DATE: 2017
